FAERS Safety Report 17093813 (Version 2)
Quarter: 2020Q1

REPORT INFORMATION
  Report Type: Report from Study
  Country: US (occurrence: US)
  Receive Date: 20191129
  Receipt Date: 20200108
  Transmission Date: 20200409
  Serious: Yes (Death)
  Sender: FDA-Public Use
  Company Number: US-ASTRAZENECA-2019SF71096

PATIENT
  Age: 61 Year
  Sex: Female
  Weight: 96.6 kg

DRUGS (7)
  1. BEVESPI AEROSPHERE [Concomitant]
     Active Substance: FORMOTEROL FUMARATE\GLYCOPYRROLATE
     Route: 065
  2. TRIAMCINOLONE HEXACETONIDE [Concomitant]
     Active Substance: TRIAMCINOLONE HEXACETONIDE
     Route: 065
  3. METOPROLOL SUCC [Concomitant]
     Active Substance: METOPROLOL SUCCINATE
     Route: 065
  4. MONTELUKAST SODIUM. [Concomitant]
     Active Substance: MONTELUKAST SODIUM
     Route: 065
  5. ELIQUIS [Concomitant]
     Active Substance: APIXABAN
     Route: 065
  6. FASENRA [Suspect]
     Active Substance: BENRALIZUMAB
     Indication: ASTHMA
     Route: 058
     Dates: start: 20180827, end: 20190925
  7. ETHOSUXIMIDE. [Concomitant]
     Active Substance: ETHOSUXIMIDE
     Route: 065

REACTIONS (1)
  - Pancreatic carcinoma stage IV [Fatal]
